FAERS Safety Report 18750865 (Version 2)
Quarter: 2022Q2

REPORT INFORMATION
  Report Type: Spontaneous
  Country: PT (occurrence: PT)
  Receive Date: 20210118
  Receipt Date: 20220414
  Transmission Date: 20220721
  Serious: Yes (Other)
  Sender: FDA-Public Use
  Company Number: PT-ACCORD-215001

PATIENT
  Age: 77 Year
  Sex: Female

DRUGS (2)
  1. AZACITIDINE [Suspect]
     Active Substance: AZACITIDINE
     Indication: Acute myeloid leukaemia
     Dosage: FOUR CYCLES, AT A DOSE OF 75 MG/M2, SUBCUTANEOUSLY (SC), FROM D1-D7, IN CYCLES OF 28 DAYS
     Route: 058
     Dates: start: 2018
  2. VENETOCLAX [Suspect]
     Active Substance: VENETOCLAX
     Indication: Acute myeloid leukaemia
     Dosage: DOSE OF 100 MG ON D1, 200 MG ON D2 AND 400 MG FROM D3 TO D28, IN CYCLE 1,
     Route: 058
     Dates: start: 2018

REACTIONS (2)
  - Urinary tract infection [Unknown]
  - Klebsiella infection [Unknown]

NARRATIVE: CASE EVENT DATE: 20180101
